FAERS Safety Report 21605957 (Version 1)
Quarter: 2022Q4

REPORT INFORMATION
  Report Type: Report from Study
  Country: IT (occurrence: IT)
  Receive Date: 20221117
  Receipt Date: 20221117
  Transmission Date: 20230113
  Serious: Yes (Hospitalization)
  Sender: FDA-Public Use
  Company Number: None

PATIENT
  Age: 90 Year
  Sex: Female

DRUGS (7)
  1. PRADAXA [Suspect]
     Active Substance: DABIGATRAN ETEXILATE MESYLATE
     Indication: Product used for unknown indication
     Route: 048
     Dates: start: 20220101, end: 20220925
  2. CLODRONATE DISODIUM [Concomitant]
     Active Substance: CLODRONATE DISODIUM
     Indication: Product used for unknown indication
  3. DIAMOX SEQUELS [Concomitant]
     Active Substance: ACETAZOLAMIDE
     Indication: Product used for unknown indication
  4. LANSOPRAZOLE [Concomitant]
     Active Substance: LANSOPRAZOLE
     Indication: Product used for unknown indication
  5. BISOPROLOL FUMARATE [Concomitant]
     Active Substance: BISOPROLOL FUMARATE
     Indication: Product used for unknown indication
  6. SIMBRINZA [Concomitant]
     Active Substance: BRIMONIDINE TARTRATE\BRINZOLAMIDE
     Indication: Product used for unknown indication
  7. LASIX [Concomitant]
     Active Substance: FUROSEMIDE
     Indication: Product used for unknown indication

REACTIONS (3)
  - Rectal haemorrhage [Not Recovered/Not Resolved]
  - Product monitoring error [Not Recovered/Not Resolved]
  - International normalised ratio increased [Not Recovered/Not Resolved]

NARRATIVE: CASE EVENT DATE: 20220925
